FAERS Safety Report 12648296 (Version 1)
Quarter: 2016Q3

REPORT INFORMATION
  Report Type: Spontaneous
  Country: CN (occurrence: CN)
  Receive Date: 20160812
  Receipt Date: 20160812
  Transmission Date: 20161109
  Serious: Yes (Life-Threatening, Hospitalization)
  Sender: FDA-Public Use
  Company Number: CN-BAYER-2016-149253

PATIENT
  Age: 46 Year
  Sex: Female

DRUGS (5)
  1. AVELOX [Suspect]
     Active Substance: MOXIFLOXACIN HYDROCHLORIDE
     Indication: INFECTION
     Dosage: 400 MG, QD
     Route: 041
     Dates: start: 20160415, end: 20160420
  2. TEICOPLANIN [Suspect]
     Active Substance: TEICOPLANIN
     Indication: INFECTION
     Dosage: 0.4 G, QD
     Route: 041
     Dates: start: 20160420, end: 20160523
  3. TIGECYCLINE. [Suspect]
     Active Substance: TIGECYCLINE
     Indication: INFECTION
     Dosage: 50 MG, BID
     Route: 041
     Dates: start: 20160420, end: 20160523
  4. CASPOFUNGIN [Suspect]
     Active Substance: CASPOFUNGIN
     Indication: INFECTION
     Dosage: 50 MG, QD
     Route: 041
     Dates: start: 20160420, end: 20160523
  5. CEFTAZIDIME. [Suspect]
     Active Substance: CEFTAZIDIME
     Indication: INFECTION
     Dosage: 2 G, TID
     Route: 041
     Dates: start: 20160415, end: 20160420

REACTIONS (1)
  - Epidermolysis bullosa [Not Recovered/Not Resolved]

NARRATIVE: CASE EVENT DATE: 20160516
